FAERS Safety Report 5286241-2 (Version None)
Quarter: 2007Q1

REPORT INFORMATION
  Report Type: 
  Country: None (occurrence: None)
  Receive Date: 20070329
  Receipt Date: 20070313
  Transmission Date: 20070707
  Serious: Yes (Hospitalization)
  Sender: FDA-Public Use
  Company Number: 2007000462

PATIENT
  Age: 31 Year
  Sex: Female
  Weight: 81.8 kg

DRUGS (2)
  1. ERLOTINIB(TABLET)  (ERLOTINIB HCL) [Suspect]
     Indication: OVARIAN CANCER
     Dosage: 150 MG (QD), ORAL
     Route: 048
     Dates: start: 20070216
  2. BEVACIZUMAB (INJECTION FOR INFUSION) [Suspect]
     Indication: OVARIAN CANCER
     Dosage: 818 MG (QOW), INTRAVENOUS
     Route: 042
     Dates: start: 20070216

REACTIONS (5)
  - BLOOD SODIUM DECREASED [None]
  - ENTEROCUTANEOUS FISTULA [None]
  - HAEMATOCRIT DECREASED [None]
  - PLATELET COUNT INCREASED [None]
  - WHITE BLOOD CELL COUNT INCREASED [None]
